FAERS Safety Report 5227050-X (Version None)
Quarter: 2007Q1

REPORT INFORMATION
  Report Type: 
  Country: None (occurrence: None)
  Receive Date: 20070201
  Receipt Date: 20070201
  Transmission Date: 20070707
  Serious: Yes (Other)
  Sender: FDA-Public Use
  Company Number: None

PATIENT
  Sex: Female
  Weight: 181.4388 kg

DRUGS (1)
  1. SEROQUEL [Suspect]
     Indication: SCHIZOAFFECTIVE DISORDER
     Dosage: VARIED - 150 MG TWICE DAILY PO
     Route: 048

REACTIONS (3)
  - HYPERSENSITIVITY [None]
  - THINKING ABNORMAL [None]
  - VOMITING [None]
